FAERS Safety Report 25021674 (Version 1)
Quarter: 2025Q1

REPORT INFORMATION
  Report Type: Report from Study
  Country: US (occurrence: US)
  Receive Date: 20250228
  Receipt Date: 20250228
  Transmission Date: 20250409
  Serious: Yes (Hospitalization, Other)
  Sender: GILEAD
  Company Number: US-GILEAD-2025-0699768

PATIENT
  Age: 65 Year
  Sex: Female

DRUGS (18)
  1. AZTREONAM LYSINE [Suspect]
     Active Substance: AZTREONAM LYSINE
     Indication: Lung disorder
     Dosage: 1 DOSAGE FORM, TID [FOR 28 DAYS ON AND 28 DAYS OFF]
     Route: 055
  2. AZTREONAM LYSINE [Suspect]
     Active Substance: AZTREONAM LYSINE
     Indication: Congenital bronchiectasis
     Dosage: NHALE 75 MG THREE TIMES DAILY FOR 28 DAYS ON AND 28 DAYS OFF
     Route: 055
  3. TOBRAMYCIN [Concomitant]
     Active Substance: TOBRAMYCIN
  4. SYMBICORT [Concomitant]
     Active Substance: BUDESONIDE\FORMOTEROL FUMARATE DIHYDRATE
  5. LEVALBUTEROL [Concomitant]
     Active Substance: LEVALBUTEROL
  6. HERBALS\TURMERIC [Concomitant]
     Active Substance: HERBALS\TURMERIC
  7. CALCIUM\CHOLECALCIFEROL\MINERALS [Concomitant]
     Active Substance: CALCIUM\CHOLECALCIFEROL\MINERALS
  8. MINERALS\VITAMINS [Concomitant]
     Active Substance: MINERALS\VITAMINS
  9. LEVALBUTEROL [Concomitant]
     Active Substance: LEVALBUTEROL
  10. MELATONIN [Concomitant]
     Active Substance: MELATONIN
  11. DIETARY SUPPLEMENT [Concomitant]
     Active Substance: DIETARY SUPPLEMENT
  12. PROBIOTICS NOS [Concomitant]
     Active Substance: PROBIOTICS NOS
  13. COENZYME Q10 [TOCOPHERYL ACETATE;UBIDECARENONE] [Concomitant]
  14. MUCINEX [Concomitant]
     Active Substance: GUAIFENESIN
  15. VITAMIN D3 [Concomitant]
     Active Substance: CHOLECALCIFEROL
  16. SODIUM CHLORIDE [Concomitant]
     Active Substance: SODIUM CHLORIDE
  17. MAGNESIUM TAURATE [Concomitant]
  18. CVS COENZYME Q 10 [Concomitant]

REACTIONS (4)
  - Influenza [Unknown]
  - Pneumonia [Unknown]
  - Acute respiratory failure [Recovered/Resolved]
  - Product use in unapproved indication [Not Recovered/Not Resolved]

NARRATIVE: CASE EVENT DATE: 20241227
